FAERS Safety Report 23470346 (Version 1)
Quarter: 2024Q1

REPORT INFORMATION
  Report Type: Spontaneous
  Country: US (occurrence: US)
  Receive Date: 20240202
  Receipt Date: 20240202
  Transmission Date: 20240409
  Serious: No
  Sender: FDA-Public Use
  Company Number: US-TARSUS PHARMACEUTICALS-TSP-US-2023-000065

PATIENT
  Age: 31 Year
  Sex: Female

DRUGS (2)
  1. XDEMVY [Suspect]
     Active Substance: LOTILANER
     Indication: Blepharitis
     Dosage: 1 DROP, BID (1 DROP INTO BOTH EYES FOR SIX WEEKS)
     Route: 047
     Dates: start: 202311, end: 20231201
  2. XDEMVY [Suspect]
     Active Substance: LOTILANER
     Indication: Eye inflammation

REACTIONS (2)
  - Off label use [Unknown]
  - Product physical issue [Unknown]
